FAERS Safety Report 19472631 (Version 3)
Quarter: 2023Q2

REPORT INFORMATION
  Report Type: Report from Study
  Country: CA (occurrence: CA)
  Receive Date: 20210629
  Receipt Date: 20230407
  Transmission Date: 20230721
  Serious: Yes (Other)
  Sender: FDA-Public Use
  Company Number: CA-JNJFOC-20210651430

PATIENT
  Age: 25 Year
  Sex: Female
  Weight: 97 kg

DRUGS (2)
  1. REMICADE [Suspect]
     Active Substance: INFLIXIMAB
     Indication: Colitis ulcerative
     Dosage: ON 07-JAN-2022, THE PATIENT ADMINISTERED DOSE. THE START DATE WAS ALSO REPORTED AS 07-JAN-2020.
     Route: 042
     Dates: start: 20190116
  2. REMICADE [Suspect]
     Active Substance: INFLIXIMAB
     Route: 042
     Dates: start: 202205

REACTIONS (2)
  - Rectal haemorrhage [Unknown]
  - Off label use [Unknown]

NARRATIVE: CASE EVENT DATE: 20190116
